FAERS Safety Report 24545460 (Version 1)
Quarter: 2024Q4

REPORT INFORMATION
  Report Type: Spontaneous
  Country: FR (occurrence: FR)
  Receive Date: 20241024
  Receipt Date: 20241024
  Transmission Date: 20250114
  Serious: Yes (Other)
  Sender: FRESENIUS KABI
  Company Number: None

PATIENT
  Age: 29 Year
  Sex: Female
  Weight: 90 kg

DRUGS (4)
  1. ROCURONIUM BROMIDE [Suspect]
     Active Substance: ROCURONIUM BROMIDE
     Indication: General anaesthesia
     Dosage: ROUTE: INTRAVENOUS
     Dates: start: 20231123, end: 20231123
  2. KETAMINE [Suspect]
     Active Substance: KETAMINE
     Indication: General anaesthesia
     Dosage: ROUTE: INTRAVENOUS
     Dates: start: 20231123, end: 20231123
  3. CEFUROXIME [Suspect]
     Active Substance: CEFUROXIME
     Indication: Antibiotic prophylaxis
     Dosage: ROUTE: INTRAVENOUS
     Dates: start: 20231123, end: 20231123
  4. DEXAMETHASONE [Suspect]
     Active Substance: DEXAMETHASONE
     Indication: Prophylaxis of nausea and vomiting
     Dosage: ROUTE: INTRAVENOUS
     Dates: start: 20231123, end: 20231123

REACTIONS (1)
  - Anaphylactic reaction [Recovered/Resolved]

NARRATIVE: CASE EVENT DATE: 20231123
